FAERS Safety Report 4639653-1 (Version None)
Quarter: 2005Q2

REPORT INFORMATION
  Report Type: 
  Country: None (occurrence: None)
  Receive Date: 20050328
  Receipt Date: 20041217
  Transmission Date: 20051028
  Serious: No
  Sender: FDA-Public Use
  Company Number: USA041286503

PATIENT
  Age: 14 Year
  Sex: Male
  Weight: 64 kg

DRUGS (2)
  1. STRATTERA [Suspect]
     Dates: start: 20041213
  2. MOTRIN [Concomitant]

REACTIONS (2)
  - BLEPHAROSPASM [None]
  - MUSCLE TWITCHING [None]
